FAERS Safety Report 26037825 (Version 1)
Quarter: 2025Q4

REPORT INFORMATION
  Report Type: Spontaneous
  Country: US (occurrence: US)
  Receive Date: 20251112
  Receipt Date: 20251112
  Transmission Date: 20260117
  Serious: Yes (Life-Threatening, Hospitalization, Other)
  Sender: BRACCO
  Company Number: US-BRACCO-2025US01881

PATIENT
  Age: 58 Year
  Sex: Male

DRUGS (14)
  1. LUMASON [Suspect]
     Active Substance: SULFUR HEXAFLUORIDE
     Indication: Echocardiogram
     Dosage: 3 ML, SINGLE (DILUTE)
     Route: 042
     Dates: start: 20250324, end: 20250324
  2. LUMASON [Suspect]
     Active Substance: SULFUR HEXAFLUORIDE
     Indication: Echocardiogram
     Dosage: 3 ML, SINGLE (DILUTE)
     Route: 042
     Dates: start: 20250324, end: 20250324
  3. LUMASON [Suspect]
     Active Substance: SULFUR HEXAFLUORIDE
     Indication: Echocardiogram
     Dosage: 3 ML, SINGLE (DILUTE)
     Route: 042
     Dates: start: 20250324, end: 20250324
  4. ALDACTONE [Concomitant]
     Active Substance: SPIRONOLACTONE
     Dosage: 25 MG TABLET IN AM
     Route: 048
  5. AMIODARONE HYDROCHLORIDE [Concomitant]
     Active Substance: AMIODARONE HYDROCHLORIDE
     Dosage: 200 (TAKE ONE 200 MG TABLET)
     Route: 048
     Dates: start: 20250305
  6. AMIODARONE HYDROCHLORIDE [Concomitant]
     Active Substance: AMIODARONE HYDROCHLORIDE
     Dosage: 400 MG (TAKE TWO 200 MG TABLETS)
     Route: 048
     Dates: end: 20250304
  7. COLACE [Concomitant]
     Active Substance: DOCUSATE SODIUM
     Dosage: 1 CAPSULE (100 MG)  IN AM
     Route: 048
  8. COREG [Concomitant]
     Active Substance: CARVEDILOL
     Dosage: 1 TABLEY IN AM 1 TABLET IN EVENING, WITH MEALSQD
     Route: 048
  9. COUMADIN [Concomitant]
     Active Substance: WARFARIN SODIUM
     Dosage: 5 MG TAKE ONE TABLET DAILY AT 1700
     Route: 048
  10. COZAAR [Concomitant]
     Active Substance: LOSARTAN POTASSIUM
     Dosage: TAKE 1/2 TABLET (25 MG)  IN AM
     Route: 048
  11. FARXIGA [Concomitant]
     Active Substance: DAPAGLIFLOZIN PROPANEDIOL
     Dosage: 10 MG TABLET IN AM
     Route: 048
  12. LIPITOR [Concomitant]
     Active Substance: ATORVASTATIN CALCIUM
     Dosage: 40 MG ( ONE TABLET NIGHTLY)
     Route: 048
  13. PEPCID [Concomitant]
     Active Substance: FAMOTIDINE
     Dosage: 1 TABLET (20 MG)  IN AM AND BEFORE BEDTIME
     Route: 048
  14. ULTRAM [Concomitant]
     Active Substance: TRAMADOL HYDROCHLORIDE
     Dosage: 50 MG (1 TABLET Q6 HOURS AS NEEDED/PRN)
     Route: 048

REACTIONS (7)
  - Loss of consciousness [Recovering/Resolving]
  - Pulse absent [Recovering/Resolving]
  - Seizure [Recovering/Resolving]
  - Cyanosis [Recovering/Resolving]
  - Wheezing [Recovering/Resolving]
  - Dyspnoea [Recovering/Resolving]
  - Dizziness [Recovering/Resolving]

NARRATIVE: CASE EVENT DATE: 20250324
